FAERS Safety Report 15053023 (Version 1)
Quarter: 2018Q2

REPORT INFORMATION
  Report Type: Spontaneous
  Country: US (occurrence: US)
  Receive Date: 20180622
  Receipt Date: 20180622
  Transmission Date: 20180711
  Serious: Yes (Hospitalization, Disabling)
  Sender: FDA-Public Use
  Company Number: US-JNJFOC-20180620283

PATIENT
  Age: 64 Year
  Sex: Male
  Weight: 119.3 kg

DRUGS (6)
  1. XARELTO [Suspect]
     Active Substance: RIVAROXABAN
     Indication: CEREBROVASCULAR ACCIDENT PROPHYLAXIS
     Route: 048
     Dates: start: 2017
  2. DILTIAZEM. [Concomitant]
     Active Substance: DILTIAZEM
     Indication: BLOOD PRESSURE ABNORMAL
     Route: 065
  3. PRILOSEC [Concomitant]
     Active Substance: OMEPRAZOLE MAGNESIUM
     Indication: BLOOD CHOLESTEROL ABNORMAL
     Route: 065
     Dates: start: 2010
  4. ASPIRIN. [Concomitant]
     Active Substance: ASPIRIN
     Route: 065
  5. XARELTO [Suspect]
     Active Substance: RIVAROXABAN
     Indication: ATRIAL FIBRILLATION
     Route: 048
     Dates: start: 2017
  6. TAMSULOSIN [Concomitant]
     Active Substance: TAMSULOSIN
     Indication: RENAL DISORDER
     Route: 065

REACTIONS (2)
  - Retinal vascular thrombosis [Recovered/Resolved with Sequelae]
  - Abnormal loss of weight [Recovering/Resolving]

NARRATIVE: CASE EVENT DATE: 20180309
